FAERS Safety Report 11331449 (Version 2)
Quarter: 2015Q3

REPORT INFORMATION
  Report Type: Spontaneous
  Country: CA (occurrence: CA)
  Receive Date: 20150803
  Receipt Date: 20150812
  Transmission Date: 20151125
  Serious: Yes (Other)
  Sender: FDA-Public Use
  Company Number: ALCN2015CA004614

PATIENT
  Age: 71 Year
  Sex: Male
  Weight: 90.7 kg

DRUGS (6)
  1. BION TEARS [Suspect]
     Active Substance: DEXTRAN 70\HYPROMELLOSE 2910 (4000 MPA.S)
     Indication: EYE IRRITATION
     Dosage: 1 DF, ONCE/SINGLE
     Route: 047
     Dates: start: 201506, end: 201506
  2. BION TEARS [Suspect]
     Active Substance: DEXTRAN 70\HYPROMELLOSE 2910 (4000 MPA.S)
     Indication: DRY EYE
  3. ALREX [Concomitant]
     Active Substance: LOTEPREDNOL ETABONATE
     Indication: OPHTHALMIC HERPES ZOSTER
     Dosage: 2 GTT, QD
     Route: 047
     Dates: start: 201505, end: 201506
  4. SYSTANE GEL DROPS ANYTIME PROTECTION [Suspect]
     Active Substance: POLYETHYLENE GLYCOL 400
     Indication: DRY EYE
     Dosage: 1 GTT, BID
     Route: 047
     Dates: start: 201506, end: 201506
  5. BRIMONIDINE [Concomitant]
     Active Substance: BRIMONIDINE TARTRATE
     Indication: OPHTHALMIC HERPES ZOSTER
     Dosage: 2 GTT, QD
     Dates: start: 201505, end: 201506
  6. ANTIHYPERTENSIVE DRUGS [Concomitant]
     Active Substance: UNSPECIFIED INGREDIENT
     Indication: BLOOD PRESSURE INCREASED
     Dosage: 1 DF, QD
     Route: 065

REACTIONS (5)
  - Ocular hyperaemia [Recovered/Resolved]
  - Eye pain [Recovered/Resolved]
  - Intraocular pressure increased [Recovered/Resolved]
  - Eye irritation [Recovered/Resolved]
  - Condition aggravated [Recovered/Resolved]
